FAERS Safety Report 5945258-2 (Version None)
Quarter: 2008Q4

REPORT INFORMATION
  Report Type: 
  Country: None (occurrence: None)
  Receive Date: 20081107
  Receipt Date: 20081106
  Transmission Date: 20090506
  Serious: Yes (Hospitalization)
  Sender: FDA-Public Use
  Company Number: BE-BRISTOL-MYERS SQUIBB COMPANY-14347686

PATIENT
  Age: 68 Year
  Sex: Male
  Weight: 67 kg

DRUGS (7)
  1. CISPLATIN [Suspect]
     Indication: NON-SMALL CELL LUNG CANCER
     Dosage: ON D1+D8 OF EVERY 21DAYS CYCLE
     Route: 042
     Dates: start: 20080805, end: 20080805
  2. ALIMTA [Suspect]
     Indication: NON-SMALL CELL LUNG CANCER
     Dosage: ON D8 OF EVERY 21 DAYS CYCLE
     Route: 042
     Dates: start: 20080805, end: 20080805
  3. BLINDED: PLACEBO [Suspect]
     Indication: NON-SMALL CELL LUNG CANCER
     Dosage: LAST DOSE PRIOR TO EVENT WAS TAKEN ON 19-AUG-2008
     Route: 048
     Dates: start: 20080729
  4. FOLIC ACID [Concomitant]
     Indication: VITAMIN SUPPLEMENTATION
     Dates: start: 20080728, end: 20080819
  5. MEDROL [Concomitant]
     Dates: start: 20080804, end: 20080806
  6. MICONAZOLE NITRATE [Concomitant]
     Indication: STOMATITIS
  7. SOLU-MEDROL [Concomitant]
     Dates: start: 20080805, end: 20080805

REACTIONS (6)
  - CANDIDIASIS [None]
  - DUODENAL ULCER [None]
  - ENDOSCOPY UPPER GASTROINTESTINAL TRACT ABNORMAL [None]
  - GASTRITIS [None]
  - OESOPHAGEAL CANDIDIASIS [None]
  - REFLUX OESOPHAGITIS [None]
